FAERS Safety Report 16764832 (Version 1)
Quarter: 2019Q3

REPORT INFORMATION
  Report Type: Spontaneous
  Country: BR (occurrence: BR)
  Receive Date: 20190903
  Receipt Date: 20190903
  Transmission Date: 20191005
  Serious: No
  Sender: FDA-Public Use
  Company Number: BR-LUPIN PHARMACEUTICALS INC.-2019-04380

PATIENT
  Age: 55 Year
  Sex: Female
  Weight: 82 kg

DRUGS (7)
  1. FLUOXETINE HYDROCHLORIDE 20 MG CAPSULE [Suspect]
     Active Substance: FLUOXETINE HYDROCHLORIDE
     Indication: MOOD SWINGS
     Dosage: 1 DOSAGE FORM, BID (IN MORNING AND IN NIGHT)
     Route: 048
     Dates: start: 20190624, end: 20190625
  2. LOSARTANA POTASSICA [Concomitant]
     Active Substance: LOSARTAN
     Indication: HYPERTENSION
     Dosage: 1 DOSAGE FORM, QD
     Route: 048
  3. CARBAMAZEPINA [Concomitant]
     Active Substance: CARBAMAZEPINE
     Indication: MOOD SWINGS
     Dosage: 1 DOSAGE FORM, QD
     Route: 048
  4. GLIBENCLAMIDA [Concomitant]
     Active Substance: GLYBURIDE
     Indication: DIABETES MELLITUS
     Dosage: 3 DOSAGE FORM, QD
     Route: 048
  5. AMITRIPTILINA [AMITRIPTYLINE] [Concomitant]
     Indication: MOOD SWINGS
     Dosage: 1 DOSAGE FORM, QD
     Route: 048
  6. HIDROCLOROTIAZIDA [Concomitant]
     Active Substance: HYDROCHLOROTHIAZIDE
     Indication: HYPERTENSION
     Dosage: 1 DOSAGE FORM, QD
     Route: 048
  7. GLIFAGE [Concomitant]
     Active Substance: METFORMIN HYDROCHLORIDE
     Indication: DIABETES MELLITUS
     Dosage: 4 DOSAGE FORM, QD
     Route: 048

REACTIONS (2)
  - Erythema [Recovered/Resolved]
  - Pruritus [Recovered/Resolved]

NARRATIVE: CASE EVENT DATE: 20190624
